FAERS Safety Report 9293388 (Version 2)
Quarter: 2013Q4

REPORT INFORMATION
  Report Type: Spontaneous
  Country: US (occurrence: US)
  Receive Date: 20130515
  Receipt Date: 20131025
  Transmission Date: 20140711
  Serious: Yes (Death, Hospitalization)
  Sender: FDA-Public Use
  Company Number: US-B.I. PHARMACEUTICALS,INC./RIDGEFIELD-2013-BI-13380BP

PATIENT
  Age: 77 Year
  Sex: Female
  Weight: 99.79 kg

DRUGS (19)
  1. PRADAXA [Suspect]
     Indication: ANTICOAGULANT THERAPY
     Dosage: 300 MG
     Dates: start: 20110818, end: 20110903
  2. PRADAXA [Suspect]
     Indication: ATRIAL FIBRILLATION
  3. CALCIUM [Concomitant]
  4. IMDUR [Concomitant]
  5. PROVENTIL [Concomitant]
  6. MEVACOR [Concomitant]
  7. HYTRIN [Concomitant]
     Dosage: 4 MG
  8. PREDNISONE [Concomitant]
     Dosage: 5 MG
  9. IRON [Concomitant]
  10. BUDESONIDE [Concomitant]
  11. VITAMIN D [Concomitant]
  12. BROVANA [Concomitant]
     Dosage: 30 MCG
  13. SPIRIVA [Concomitant]
     Dosage: 18 MCG
  14. LASIX [Concomitant]
     Dosage: 80 MG
  15. THYROXINE [Concomitant]
  16. ASPIRIN [Concomitant]
     Dosage: 81 MG
  17. CARDIZEM CD [Concomitant]
  18. KLOR-CON [Concomitant]
     Indication: NEPHROPATHY
  19. ZAROXOLYN [Concomitant]

REACTIONS (2)
  - Gastrointestinal haemorrhage [Fatal]
  - Blood urine present [Unknown]
